FAERS Safety Report 9356388 (Version 1)
Quarter: 2013Q2

REPORT INFORMATION
  Report Type: Spontaneous
  Country: FR (occurrence: FR)
  Receive Date: 20130619
  Receipt Date: 20130619
  Transmission Date: 20140414
  Serious: Yes (Hospitalization)
  Sender: FDA-Public Use
  Company Number: FR-TEVA-412613ISR

PATIENT
  Sex: Female

DRUGS (1)
  1. TAMOXIFEN TEVA 20 MG [Suspect]
     Indication: NEOPLASM
     Dates: start: 2012

REACTIONS (2)
  - Foot deformity [Recovered/Resolved]
  - Dysgeusia [Recovered/Resolved]
